FAERS Safety Report 26055014 (Version 1)
Quarter: 2025Q4

REPORT INFORMATION
  Report Type: Report from Study
  Country: US (occurrence: US)
  Receive Date: 20251117
  Receipt Date: 20251117
  Transmission Date: 20260119
  Serious: Yes (Other)
  Sender: ABBVIE
  Company Number: US-ABBVIE-6548410

PATIENT
  Sex: Female

DRUGS (1)
  1. UBRELVY [Suspect]
     Active Substance: UBROGEPANT
     Indication: Migraine
     Dosage: TIME INTERVAL: 0.33333333 DAYS: 100 MG TRIPLEX, TAKE ONE TABLET BY MOUTH AS NEEDED FOR MIGRAINE, ...
     Route: 048

REACTIONS (1)
  - Lacunar stroke [Unknown]
